FAERS Safety Report 4697993-4 (Version None)
Quarter: 2005Q2

REPORT INFORMATION
  Report Type: 
  Country: None (occurrence: None)
  Receive Date: 20050621
  Receipt Date: 20050607
  Transmission Date: 20051028
  Serious: Yes (Disabling)
  Sender: FDA-Public Use
  Company Number: 2005084736

PATIENT
  Age: 53 Year
  Sex: Male

DRUGS (2)
  1. SERLAIN (SERTRALINE) [Suspect]
     Indication: DEPRESSION
     Dosage: 50 MG (50 MG, 1 IN 1 D), ORAL
     Route: 048
  2. TIZANIDINE HCL [Suspect]
     Indication: ILL-DEFINED DISORDER
     Dosage: ORAL
     Route: 048

REACTIONS (3)
  - ABASIA [None]
  - DRUG INTERACTION [None]
  - FEELING ABNORMAL [None]
